FAERS Safety Report 5289494-X (Version None)
Quarter: 2007Q2

REPORT INFORMATION
  Report Type: 
  Country: None (occurrence: None)
  Receive Date: 20070406
  Receipt Date: 20070327
  Transmission Date: 20071010
  Serious: Yes (Other)
  Sender: FDA-Public Use
  Company Number: PHBS2007US05417

PATIENT
  Age: 33 Year
  Sex: Female

DRUGS (4)
  1. CLOZAPINE [Suspect]
     Indication: SCHIZOAFFECTIVE DISORDER
     Dosage: 200 MG/D
  2. CLOZAPINE [Suspect]
     Route: 065
  3. CLOZAPINE [Suspect]
     Dosage: 500 MG/D
     Route: 065
  4. ETHINYL ESTRADIOL TAB [Suspect]

REACTIONS (6)
  - ASTHENIA [None]
  - DIZZINESS [None]
  - DIZZINESS POSTURAL [None]
  - DRUG INTERACTION [None]
  - DRUG LEVEL INCREASED [None]
  - SOMNOLENCE [None]
